FAERS Safety Report 4879134-3 (Version None)
Quarter: 2006Q1

REPORT INFORMATION
  Report Type: 
  Country: None (occurrence: None)
  Receive Date: 20060112
  Receipt Date: 20040628
  Transmission Date: 20060701
  Serious: Yes (Death, Hospitalization)
  Sender: FDA-Public Use
  Company Number: KR-ROCHE-372240

PATIENT
  Age: 56 Year
  Sex: Female

DRUGS (6)
  1. CAPECITABINE [Suspect]
     Indication: BREAST CANCER
     Route: 048
     Dates: start: 20040428, end: 20040430
  2. IXABEPILONE [Suspect]
     Indication: BREAST CANCER
     Route: 042
     Dates: start: 20040428, end: 20040428
  3. MEFENAMIC ACID [Concomitant]
     Dates: start: 20040413, end: 20040507
  4. PETHIDINE HYDROCHLORIDE [Concomitant]
     Dates: start: 20040413, end: 20040503
  5. DIPHENHYDRAMINE [Concomitant]
     Dates: start: 20040407, end: 20040429
  6. CIMETIDINE [Concomitant]
     Dates: start: 20040407, end: 20040429

REACTIONS (13)
  - ACUTE RESPIRATORY DISTRESS SYNDROME [None]
  - ACUTE RESPIRATORY FAILURE [None]
  - BLOOD BILIRUBIN INCREASED [None]
  - CANDIDIASIS [None]
  - DIARRHOEA [None]
  - METABOLIC ACIDOSIS [None]
  - MULTI-ORGAN FAILURE [None]
  - NEUTROPENIA [None]
  - PNEUMONIA STAPHYLOCOCCAL [None]
  - RENAL FAILURE [None]
  - SEPTIC SHOCK [None]
  - THROMBOCYTOPENIA [None]
  - VENTRICULAR FIBRILLATION [None]
